FAERS Safety Report 18706841 (Version 1)
Quarter: 2021Q1

REPORT INFORMATION
  Report Type: Spontaneous
  Country: NL (occurrence: NL)
  Receive Date: 20210106
  Receipt Date: 20210106
  Transmission Date: 20210419
  Serious: Yes (Other)
  Sender: FDA-Public Use
  Company Number: NL-PFIZER INC-2021002432

PATIENT
  Age: 63 Year
  Sex: Female

DRUGS (2)
  1. FEXOFENADINE [Concomitant]
     Active Substance: FEXOFENADINE HYDROCHLORIDE
     Dosage: 180 MG
  2. GABAPENTIN. [Suspect]
     Active Substance: GABAPENTIN
     Indication: BRACHIORADIAL PRURITUS
     Dosage: 1 DF, 2X/DAY (FREQUENCY:12 H;2 X DAILY1 )
     Dates: start: 20201007

REACTIONS (2)
  - Swollen tear duct [Not Recovered/Not Resolved]
  - Off label use [Unknown]

NARRATIVE: CASE EVENT DATE: 20201007
